FAERS Safety Report 12797936 (Version 2)
Quarter: 2016Q4

REPORT INFORMATION
  Report Type: Spontaneous
  Country: CN (occurrence: CN)
  Receive Date: 20160930
  Receipt Date: 20161020
  Transmission Date: 20170207
  Serious: Yes (Hospitalization, Other)
  Sender: FDA-Public Use
  Company Number: CN-GLAXOSMITHKLINE-CN2016GSK141767

PATIENT
  Age: 77 Year
  Sex: Female

DRUGS (3)
  1. MIGLITOL. [Suspect]
     Active Substance: MIGLITOL
     Indication: DIABETES MELLITUS
     Route: 048
  2. ACERTIL (PERINDOPRIL) [Suspect]
     Active Substance: PERINDOPRIL ERBUMINE
     Indication: HYPERTENSION
     Route: 048
  3. SERETIDE [Suspect]
     Active Substance: FLUTICASONE PROPIONATE\SALMETEROL XINAFOATE
     Indication: ASTHMA
     Dosage: UNK
     Route: 055

REACTIONS (7)
  - Disease recurrence [Unknown]
  - Tumour excision [Recovered/Resolved]
  - Expired product administered [Unknown]
  - Fall [Recovering/Resolving]
  - Comminuted fracture [Recovering/Resolving]
  - Inappropriate schedule of drug administration [Unknown]
  - Drug ineffective [Unknown]

NARRATIVE: CASE EVENT DATE: 201404
